FAERS Safety Report 5086047-3 (Version None)
Quarter: 2006Q3

REPORT INFORMATION
  Report Type: 
  Country: None (occurrence: None)
  Receive Date: 20060817
  Receipt Date: 20060803
  Transmission Date: 20061208
  Serious: Yes (Life-Threatening, Hospitalization)
  Sender: FDA-Public Use
  Company Number: SP-2006-003142

PATIENT
  Age: 55 Year
  Sex: Female
  Weight: 124 kg

DRUGS (6)
  1. ALTEIS [Suspect]
     Indication: ESSENTIAL HYPERTENSION
     Dosage: 10 MG QD PO
     Route: 048
  2. SEROPRAM [Suspect]
     Indication: MUSCULOSKELETAL PAIN
  3. DAFALGAN CODEINE [Suspect]
     Indication: MUSCULOSKELETAL PAIN
  4. PLAVIX [Suspect]
     Dosage: 75 MG DAILY PO
     Route: 048
  5. PARIET [Suspect]
  6. BUFLOMEDIL [Concomitant]

REACTIONS (9)
  - GASTRIC ULCER PERFORATION [None]
  - HYPERKALAEMIA [None]
  - MYOGLOBINAEMIA [None]
  - NEUTROPHIL PERCENTAGE INCREASED [None]
  - PERITONITIS [None]
  - PLATELET COUNT INCREASED [None]
  - RENAL FAILURE ACUTE [None]
  - SEPTIC SHOCK [None]
  - WHITE BLOOD CELL COUNT INCREASED [None]
